FAERS Safety Report 21995362 (Version 1)
Quarter: 2023Q1

REPORT INFORMATION
  Report Type: Spontaneous
  Country: UA (occurrence: UA)
  Receive Date: 20230215
  Receipt Date: 20230215
  Transmission Date: 20230418
  Serious: Yes (Hospitalization, Other)
  Sender: FDA-Public Use
  Company Number: UA-SA-2023SA049604

PATIENT
  Age: 56 Year
  Sex: Female
  Weight: 67 kg

DRUGS (25)
  1. FUROSEMIDE [Suspect]
     Active Substance: FUROSEMIDE
     Indication: Cardiac failure chronic
  2. FUROSEMIDE [Suspect]
     Active Substance: FUROSEMIDE
     Dosage: 80 MG, QD
     Route: 042
  3. FUROSEMIDE [Suspect]
     Active Substance: FUROSEMIDE
     Dosage: 80 MG
     Route: 042
     Dates: start: 20220620, end: 20220621
  4. RAMIPRIL [Suspect]
     Active Substance: RAMIPRIL
     Indication: Cardiac failure chronic
     Dosage: UNK
     Dates: start: 2021
  5. SPIRONOLACTONE [Suspect]
     Active Substance: SPIRONOLACTONE
     Indication: Cardiac failure chronic
     Dosage: 50 MG, QD
  6. SPIRONOLACTONE [Suspect]
     Active Substance: SPIRONOLACTONE
     Dosage: 50 MG, QD (IS HALVED)
     Dates: start: 20220716
  7. METOCLOPRAMIDE HYDROCHLORIDE [Suspect]
     Active Substance: METOCLOPRAMIDE HYDROCHLORIDE
     Indication: Cardiac failure chronic
     Dosage: 10 MG, QD
  8. ENOXAPARIN SODIUM [Suspect]
     Active Substance: ENOXAPARIN SODIUM
     Indication: Cardiac failure chronic
     Dosage: 40 MG, QD
  9. EMPAGLIFLOZIN [Suspect]
     Active Substance: EMPAGLIFLOZIN
     Indication: Cardiac failure chronic
     Dosage: UNK
     Dates: start: 2021
  10. EMPAGLIFLOZIN [Suspect]
     Active Substance: EMPAGLIFLOZIN
     Dosage: 10 MG, QD
  11. TORSEMIDE [Suspect]
     Active Substance: TORSEMIDE
     Indication: Cardiac failure chronic
     Dosage: UNK
     Dates: start: 2021
  12. TORSEMIDE [Suspect]
     Active Substance: TORSEMIDE
     Dosage: 20 MG, QD
  13. TORSEMIDE [Suspect]
     Active Substance: TORSEMIDE
     Dosage: 40 MG
     Dates: start: 20220620, end: 20220621
  14. TORSEMIDE [Suspect]
     Active Substance: TORSEMIDE
     Dosage: 20 MG, QD
     Dates: start: 20220622
  15. TORSEMIDE [Suspect]
     Active Substance: TORSEMIDE
     Dosage: 10 MG, QD
  16. XIPAMIDE [Suspect]
     Active Substance: XIPAMIDE
     Indication: Cardiac failure chronic
     Dosage: 20 MG, QD
     Route: 048
     Dates: start: 20220620, end: 20220621
  17. CARVEDILOL [Concomitant]
     Active Substance: CARVEDILOL
     Indication: Cardiac failure chronic
     Dosage: UNK
     Dates: start: 2021
  18. CARVEDILOL [Concomitant]
     Active Substance: CARVEDILOL
     Dosage: 3.125 MG, BID
     Dates: start: 20220630
  19. IVABRADINE [Concomitant]
     Active Substance: IVABRADINE
     Indication: Cardiac failure chronic
     Dosage: UNK
     Dates: start: 2021
  20. IVABRADINE [Concomitant]
     Active Substance: IVABRADINE
     Dosage: 5 MG, BID
  21. IVABRADINE [Concomitant]
     Active Substance: IVABRADINE
     Dosage: 2.5 MG, BID
     Dates: start: 20220630
  22. EPLERENONE [Concomitant]
     Active Substance: EPLERENONE
     Indication: Cardiac failure chronic
     Dosage: UNK
     Dates: start: 2021
  23. LEVOSIMENDAN [Concomitant]
     Active Substance: LEVOSIMENDAN
     Indication: Cardiac failure chronic
     Dosage: UNK
     Dates: start: 202203
  24. OMEPRAZOLE [Concomitant]
     Active Substance: OMEPRAZOLE
     Indication: Cardiac failure chronic
     Dosage: 20 MG, QD
  25. DOPAMINE [Concomitant]
     Active Substance: DOPAMINE HYDROCHLORIDE
     Indication: Cardiac failure chronic
     Dosage: 2 UG/KG, QMN
     Route: 042

REACTIONS (16)
  - Hyponatraemia [Recovered/Resolved]
  - Asthenia [Recovered/Resolved]
  - Balance disorder [Recovered/Resolved]
  - Fall [Recovered/Resolved]
  - Head injury [Recovered/Resolved]
  - Sluggishness [Recovered/Resolved]
  - Decreased appetite [Recovered/Resolved]
  - Hypovolaemia [Recovered/Resolved]
  - Lethargy [Recovered/Resolved]
  - Nausea [Recovered/Resolved]
  - Hypotension [Recovered/Resolved]
  - Hypoosmolar state [Recovered/Resolved]
  - Depressed level of consciousness [Recovered/Resolved]
  - Jaundice [Recovered/Resolved]
  - Dry skin [Recovered/Resolved]
  - Haematoma [Unknown]
